FAERS Safety Report 18204424 (Version 2)
Quarter: 2021Q1

REPORT INFORMATION
  Report Type: Spontaneous
  Country: US (occurrence: US)
  Receive Date: 20200827
  Receipt Date: 20210224
  Transmission Date: 20210419
  Serious: Yes (Hospitalization, Other)
  Sender: FDA-Public Use
  Company Number: NVSC2020US229472

PATIENT
  Sex: Female
  Weight: 46.27 kg

DRUGS (8)
  1. TASIGNA [Suspect]
     Active Substance: NILOTINIB
     Indication: CHRONIC MYELOID LEUKAEMIA
     Dosage: UNK (TOOK 18 ? 20 YEARS AGO)
     Route: 065
  2. SPRYCEL [Suspect]
     Active Substance: DASATINIB
     Indication: CHRONIC MYELOID LEUKAEMIA
     Dosage: UNK
     Route: 065
  3. BOSULIF [Suspect]
     Active Substance: BOSUTINIB MONOHYDRATE
     Dosage: 1 DF, QD
     Route: 065
  4. INTERFERON BETA?1B [Suspect]
     Active Substance: INTERFERON BETA-1B
     Indication: CHRONIC MYELOID LEUKAEMIA
     Dosage: UNK
     Route: 065
  5. BOSULIF [Suspect]
     Active Substance: BOSUTINIB MONOHYDRATE
     Indication: CHRONIC MYELOID LEUKAEMIA
     Dosage: 2 DF, BID
     Route: 065
  6. GLEEVEC [Suspect]
     Active Substance: IMATINIB MESYLATE
     Indication: CHRONIC MYELOID LEUKAEMIA
     Dosage: UNK (TOOK 4 YEARS AGO)
     Route: 065
  7. INTERFERON BETA?1B [Suspect]
     Active Substance: INTERFERON BETA-1B
  8. INTERFERON BETA?1B [Suspect]
     Active Substance: INTERFERON BETA-1B

REACTIONS (17)
  - Peripheral swelling [Unknown]
  - Fatigue [Not Recovered/Not Resolved]
  - Illness [Unknown]
  - Eating disorder [Not Recovered/Not Resolved]
  - Oesophageal ulcer haemorrhage [Unknown]
  - Asthenia [Not Recovered/Not Resolved]
  - Gastrooesophageal reflux disease [Unknown]
  - Leukaemia [Unknown]
  - Pericardial effusion [Unknown]
  - Pleural effusion [Unknown]
  - Dyspnoea [Unknown]
  - Weight decreased [Not Recovered/Not Resolved]
  - Coagulopathy [Unknown]
  - Gait disturbance [Unknown]
  - Headache [Not Recovered/Not Resolved]
  - Product use in unapproved indication [Unknown]
  - Drug ineffective [Unknown]
